FAERS Safety Report 8534759 (Version 10)
Quarter: 2016Q4

REPORT INFORMATION
  Report Type: Spontaneous
  Country: US (occurrence: US)
  Receive Date: 20120427
  Receipt Date: 20161021
  Transmission Date: 20170207
  Serious: Yes (Other)
  Sender: FDA-Public Use
  Company Number: US-ASTRAZENECA-2011SE54529

PATIENT
  Age: 1033 Month
  Sex: Female
  Weight: 72.6 kg

DRUGS (10)
  1. MORPHINE [Suspect]
     Active Substance: MORPHINE
     Dosage: NON AZ PRODUCT
     Route: 065
  2. VITAMIN C [Concomitant]
     Active Substance: ASCORBIC ACID
     Route: 065
     Dates: start: 2004
  3. B12 SUBLINGUAL [Concomitant]
     Indication: ASTHENIA
     Route: 060
     Dates: start: 2011
  4. PLAVIX [Concomitant]
     Active Substance: CLOPIDOGREL BISULFATE
     Indication: THROMBOSIS
     Route: 065
     Dates: start: 2004
  5. PLAVIX [Concomitant]
     Active Substance: CLOPIDOGREL BISULFATE
     Indication: BLOOD DISORDER
     Dosage: GENERIC CLOPIDOGREL
     Route: 065
  6. PLAVIX [Concomitant]
     Active Substance: CLOPIDOGREL BISULFATE
     Indication: THROMBOSIS
     Dosage: GENERIC CLOPIDOGREL
     Route: 065
  7. CRESTOR [Suspect]
     Active Substance: ROSUVASTATIN CALCIUM
     Indication: BLOOD CHOLESTEROL ABNORMAL
     Route: 048
     Dates: start: 2004, end: 2013
  8. CRESTOR [Suspect]
     Active Substance: ROSUVASTATIN CALCIUM
     Indication: BLOOD CHOLESTEROL ABNORMAL
     Route: 048
  9. CALCIUM MAGNESIUM AND ZINC [Concomitant]
     Indication: IMMUNE SYSTEM DISORDER
     Dosage: DAILY
     Route: 065
     Dates: start: 2008
  10. PLAVIX [Concomitant]
     Active Substance: CLOPIDOGREL BISULFATE
     Indication: BLOOD DISORDER
     Route: 065
     Dates: start: 2004

REACTIONS (24)
  - Carotid artery stenosis [Unknown]
  - Blood triglycerides increased [Unknown]
  - Fall [Unknown]
  - Condition aggravated [Unknown]
  - Body height decreased [Unknown]
  - Hypertension [Unknown]
  - Renal artery occlusion [Unknown]
  - Fear [Unknown]
  - Subclavian artery occlusion [Unknown]
  - Asthenia [Unknown]
  - Myocardial infarction [Unknown]
  - Renal impairment [Unknown]
  - Thrombosis [Unknown]
  - Coronary artery occlusion [Unknown]
  - Pain in extremity [Unknown]
  - Drug dose omission [Unknown]
  - Lower limb fracture [Recovered/Resolved]
  - Anxiety [Unknown]
  - Blood cholesterol increased [Unknown]
  - Low density lipoprotein increased [Unknown]
  - Cardiac disorder [Unknown]
  - Accident [Unknown]
  - Concussion [Unknown]
  - Head injury [Unknown]

NARRATIVE: CASE EVENT DATE: 2004
